FAERS Safety Report 5362916-1 (Version None)
Quarter: 2007Q2

REPORT INFORMATION
  Report Type: 
  Country: None (occurrence: None)
  Receive Date: 20070530
  Receipt Date: 20070328
  Transmission Date: 20071010
  Serious: No
  Sender: FDA-Public Use
  Company Number: 2007PV032579

PATIENT
  Age: 66 Year
  Sex: Female
  Weight: 132.4503 kg

DRUGS (1)
  1. BYETTA [Suspect]
     Indication: DIABETES MELLITUS MALNUTRITION-RELATED
     Dosage: 5 MCG;BID;SC
     Route: 058
     Dates: start: 20070226

REACTIONS (2)
  - MUSCLE SPASMS [None]
  - URINARY TRACT INFECTION [None]
